FAERS Safety Report 4756031-5 (Version None)
Quarter: 2005Q3

REPORT INFORMATION
  Report Type: 
  Country: None (occurrence: None)
  Receive Date: 20050825
  Receipt Date: 20050503
  Transmission Date: 20060218
  Serious: Yes (Life-Threatening, Disabling)
  Sender: FDA-Public Use
  Company Number: WAES 0505USA00464

PATIENT
  Age: 62 Year
  Sex: Female

DRUGS (5)
  1. VYTORIN [Suspect]
     Indication: BLOOD CHOLESTEROL INCREASED
     Dosage: 10-40 MG/DAILY/PO
     Route: 048
     Dates: start: 20041001
  2. ACIPHEX [Concomitant]
  3. ADVAIR DISKUS 100/50 [Concomitant]
  4. CALDINE [Concomitant]
  5. (THERAPY UNSPECIFIED) [Concomitant]

REACTIONS (1)
  - MYALGIA [None]
